FAERS Safety Report 8440265-2 (Version None)
Quarter: 2012Q2

REPORT INFORMATION
  Report Type: 
  Country: None (occurrence: None)
  Receive Date: 20120615
  Receipt Date: 20120607
  Transmission Date: 20120825
  Serious: Yes (Hospitalization)
  Sender: FDA-Public Use
  Company Number: US-PFIZER INC-2012136539

PATIENT
  Sex: Male
  Weight: 112.5 kg

DRUGS (1)
  1. AXITINIB [Suspect]
     Indication: PROSTATE CANCER
     Dosage: 5 MG, 2X/DAY (2 WEEKS ON, 1 WEEK OFF)
     Route: 048
     Dates: start: 20120502, end: 20120605

REACTIONS (2)
  - CHEST PAIN [None]
  - HYPERTENSION [None]
